FAERS Safety Report 10112230 (Version 1)
Quarter: 2014Q2

REPORT INFORMATION
  Report Type: Spontaneous
  Country: US (occurrence: US)
  Receive Date: 20140425
  Receipt Date: 20140425
  Transmission Date: 20141212
  Serious: No
  Sender: FDA-Public Use
  Company Number: US-ASTRAZENECA-2014SE20812

PATIENT
  Sex: 0

DRUGS (2)
  1. PRILOSEC OTC [Suspect]
     Route: 048
     Dates: start: 20140323, end: 20140324
  2. BICALUTAMIDE [Concomitant]
     Dosage: UNKNOWN

REACTIONS (3)
  - Eructation [Recovered/Resolved]
  - Flatulence [Recovered/Resolved]
  - Malaise [Recovered/Resolved]
